FAERS Safety Report 15264182 (Version 1)
Quarter: 2018Q3

REPORT INFORMATION
  Report Type: Spontaneous
  Country: US (occurrence: US)
  Receive Date: 20180721
  Receipt Date: 20180721
  Transmission Date: 20181010
  Serious: Yes (Other)
  Sender: FDA-Public Use
  Company Number: None

PATIENT
  Age: 33 Year
  Sex: Male
  Weight: 76.5 kg

DRUGS (7)
  1. LAMOTRIGINE. [Concomitant]
     Active Substance: LAMOTRIGINE
  2. LETROZOLE. [Concomitant]
     Active Substance: LETROZOLE
  3. GABAPENTIN. [Concomitant]
     Active Substance: GABAPENTIN
  4. TESTOSTERONE. [Concomitant]
     Active Substance: TESTOSTERONE
  5. OLANZAPINE 20 MG ODT TAB (MP) [Suspect]
     Active Substance: OLANZAPINE
     Indication: POST-TRAUMATIC STRESS DISORDER
     Dosage: ?          QUANTITY:30 TABLET(S);?
     Route: 060
     Dates: start: 20180719, end: 20180721
  6. VITAMIN B12 [Concomitant]
     Active Substance: CYANOCOBALAMIN
  7. PROTEIN [Concomitant]
     Active Substance: PROTEIN

REACTIONS (4)
  - Hallucination [None]
  - Neuralgia [None]
  - Autonomic nervous system imbalance [None]
  - Mental disorder [None]

NARRATIVE: CASE EVENT DATE: 20180719
